APPROVED DRUG PRODUCT: DIPROLENE
Active Ingredient: BETAMETHASONE DIPROPIONATE
Strength: EQ 0.05% BASE
Dosage Form/Route: GEL, AUGMENTED;TOPICAL
Application: N019408 | Product #002
Applicant: SCHERING CORP SUB SCHERING PLOUGH CORP
Approved: Nov 22, 1991 | RLD: No | RS: No | Type: DISCN